FAERS Safety Report 5757403-2 (Version None)
Quarter: 2008Q2

REPORT INFORMATION
  Report Type: 
  Country: None (occurrence: None)
  Receive Date: 20080603
  Receipt Date: 20080520
  Transmission Date: 20081010
  Serious: Yes (Other)
  Sender: FDA-Public Use
  Company Number: BR-AMGEN-UK281690

PATIENT
  Age: 8 Year
  Sex: Male

DRUGS (1)
  1. GRANULOKINE [Suspect]
     Indication: NEUTROPENIA
     Route: 065
     Dates: start: 20020101

REACTIONS (1)
  - EOSINOPHILIA [None]
